FAERS Safety Report 17237983 (Version 1)
Quarter: 2020Q1

REPORT INFORMATION
  Report Type: Spontaneous
  Country: US (occurrence: US)
  Receive Date: 20200106
  Receipt Date: 20200106
  Transmission Date: 20200409
  Serious: No
  Sender: FDA-Public Use
  Company Number: US-PACIRA-201900039

PATIENT

DRUGS (5)
  1. EXPAREL [Suspect]
     Active Substance: BUPIVACAINE
     Indication: KNEE ARTHROPLASTY
     Dosage: 266MG/20ML LIPOSOMAL BUPIVACAINE WERE ADMIXED WITH BUPIVACAINE HCL 0.5% 20 ML, FREQUENCY : UNK
  2. ACETAMINOPHEN. [Concomitant]
     Active Substance: ACETAMINOPHEN
     Indication: PAIN
     Dosage: 1000 MG, UNK, FREQUENCY : UNK
     Route: 048
  3. PREGABALIN. [Concomitant]
     Active Substance: PREGABALIN
     Indication: PAIN
     Dosage: 300 MG, UNK, FREQUENCY : UNK
     Route: 048
  4. CELECOXIB. [Concomitant]
     Active Substance: CELECOXIB
     Indication: PAIN
     Dosage: 200 MG, UNK, FREQUENCY : UNK
     Route: 048
  5. TRANEXAMIC ACID. [Concomitant]
     Active Substance: TRANEXAMIC ACID
     Indication: PAIN
     Dosage: 1000 MG, UNK, WITHIN FOUR HORS BEFORE SURGERY, FREQUENCY : UNK
     Route: 042

REACTIONS (1)
  - Insomnia [Unknown]
